FAERS Safety Report 6658007-X (Version None)
Quarter: 2010Q1

REPORT INFORMATION
  Report Type: 
  Country: None (occurrence: None)
  Receive Date: 20100330
  Receipt Date: 20100318
  Transmission Date: 20100710
  Serious: Yes (Other)
  Sender: FDA-Public Use
  Company Number: CA-JNJCH-2010006800

PATIENT
  Age: 52 Year
  Sex: Female
  Weight: 63.1 kg

DRUGS (6)
  1. BENADRYL [Suspect]
     Indication: URTICARIA
     Dosage: TEXT:1 TABLET EVERY 4 HOURS
     Route: 048
     Dates: start: 20100316, end: 20100316
  2. BENADRYL [Suspect]
     Indication: URTICARIA
     Dosage: TEXT:1 TO 2 CAPLETS EVERY FOUR HOURS
     Route: 048
     Dates: start: 20100317, end: 20100317
  3. VITAMINS [Concomitant]
     Indication: VITAMIN SUPPLEMENTATION
     Dosage: TEXT:1X DAILY
     Route: 065
  4. LEVONORGESTREL AND ETHINYL ESTRADIOL [Concomitant]
     Indication: CONTRACEPTION
     Dosage: TEXT:1X DAILY
     Route: 065
  5. DETROL [Concomitant]
     Indication: BLADDER DISORDER
     Dosage: TEXT:1X DAILY
     Route: 065
  6. CLONAZEPAM [Concomitant]
     Indication: ANXIETY
     Dosage: TEXT:.05MG 1X NIGHTLY
     Route: 065

REACTIONS (6)
  - ADVERSE REACTION [None]
  - DIARRHOEA [None]
  - DIZZINESS [None]
  - HAEMATOCHEZIA [None]
  - SOMNOLENCE [None]
  - VOMITING [None]
